FAERS Safety Report 8844053 (Version 1)
Quarter: 2012Q4

REPORT INFORMATION
  Report Type: 
  Country: US (occurrence: US)
  Receive Date: 20121016
  Receipt Date: 20121016
  Transmission Date: 20130627
  Serious: Yes (Other)
  Sender: FDA-Public Use
  Company Number: US-PFIZER INC-2012253129

PATIENT
  Sex: Female

DRUGS (2)
  1. PREMARIN [Suspect]
  2. XALATAN [Suspect]

REACTIONS (1)
  - Neoplasm malignant [Unknown]
